FAERS Safety Report 25459187 (Version 1)
Quarter: 2025Q2

REPORT INFORMATION
  Report Type: Spontaneous
  Country: ES (occurrence: ES)
  Receive Date: 20250620
  Receipt Date: 20250620
  Transmission Date: 20250717
  Serious: Yes (Other)
  Sender: ROCHE
  Company Number: None

PATIENT
  Age: 64 Year
  Sex: Female

DRUGS (10)
  1. CAPECITABINE [Suspect]
     Active Substance: CAPECITABINE
     Indication: Adenocarcinoma of colon
     Route: 042
     Dates: start: 20250515
  2. BEVACIZUMAB [Suspect]
     Active Substance: BEVACIZUMAB
     Indication: Adenocarcinoma of colon
     Route: 042
     Dates: start: 20250515
  3. OXALIPLATIN [Suspect]
     Active Substance: OXALIPLATIN
     Indication: Adenocarcinoma of colon
     Route: 042
     Dates: start: 20250515
  4. OMEPRAZOL CINFA 20 mg CAPSULAS DURAS GASTRORRESISTENTES EFG , 28 c?psu [Concomitant]
     Route: 048
     Dates: start: 20240911
  5. NATECAL D FLAS 1.500 MG/400 UI COMPRIMIDOS BUCODISPERSABLES , 60 compr [Concomitant]
     Route: 048
     Dates: start: 20120502
  6. HIDROCLOROTIAZIDA KERN PHARMA 50 mg COMPRIMIDOS EFG, 20 comprimidos [Concomitant]
     Dosage: MEDIO COMPRIMIDO DE 50 MG CADA 24 HORAS
     Route: 048
     Dates: start: 20120502
  7. LYRICA 75 MG CAPSULAS DURAS, 56 c?psulas [Concomitant]
     Route: 048
     Dates: start: 20151009
  8. CYMBALTA [Concomitant]
     Active Substance: DULOXETINE HYDROCHLORIDE
     Route: 048
     Dates: start: 20220218
  9. CHOLECALCIFEROL [Concomitant]
     Active Substance: CHOLECALCIFEROL
     Route: 048
     Dates: start: 20181004
  10. PROLIA 60 mg SOLUCION INYECTABLE EN JERINGA PRECARGADA, 1 jeringa prec [Concomitant]
     Route: 058
     Dates: start: 20140530

REACTIONS (1)
  - Anaphylactic reaction [Recovered/Resolved]

NARRATIVE: CASE EVENT DATE: 20250515
